FAERS Safety Report 8389762 (Version 5)
Quarter: 2012Q4

REPORT INFORMATION
  Report Type: Report from Study
  Country: US (occurrence: US)
  Receive Date: 20120203
  Receipt Date: 20121213
  Transmission Date: 20130627
  Serious: Yes (Hospitalization, Other)
  Sender: FDA-Public Use
  Company Number: US-ABBOTT-12P-163-0898586-00

PATIENT
  Sex: Male
  Weight: 96.7 kg

DRUGS (16)
  1. HUMIRA 40 MG/0.8 ML PEN [Suspect]
     Indication: RHEUMATOID ARTHRITIS
     Dates: start: 20100210, end: 20120104
  2. HUMIRA 40 MG/0.8 ML PEN [Suspect]
     Dates: start: 201201
  3. DESIPRAMINE [Suspect]
     Indication: DEPRESSION
     Dates: end: 2011
  4. INSULIN [Suspect]
     Indication: DIABETES MELLITUS
     Dates: start: 2011, end: 2011
  5. BENAZEPRIL [Concomitant]
     Indication: BLOOD PRESSURE ABNORMAL
     Dosage: 1 every morning
  6. BISOPROLOL/HCTZ [Concomitant]
     Indication: BLOOD PRESSURE ABNORMAL
     Dosage: 10/6.25mg daily
     Route: 048
  7. BISOPROLOL/HCTZ [Concomitant]
     Indication: FLUID RETENTION
  8. CARBIDOPA AND LEVODOPA [Concomitant]
     Indication: TREMOR
     Dosage: 25/100mg 1 three times a day
     Route: 048
  9. DOXAZOSIN [Concomitant]
     Indication: URINE FLOW DECREASED
     Dosage: 4mg 1 daily
     Route: 048
  10. PANTOPRAZOLE [Concomitant]
     Indication: PRODUCT USED FOR UNKNOWN INDICATION
     Route: 048
  11. MIRALAX [Concomitant]
     Indication: PRODUCT USED FOR UNKNOWN INDICATION
     Dosage: 8oz water on Tuesday, Thursday and Saturday
  12. SIMVASTATIN [Concomitant]
     Indication: PRODUCT USED FOR UNKNOWN INDICATION
     Route: 048
  13. METFORMIN [Concomitant]
     Indication: PRODUCT USED FOR UNKNOWN INDICATION
     Dosage: Daily
     Dates: end: 2011
  14. METFORMIN [Concomitant]
     Dates: start: 2011
  15. MULTIVITAMIN [Concomitant]
     Indication: PRODUCT USED FOR UNKNOWN INDICATION
  16. XANAX [Concomitant]
     Indication: PRODUCT USED FOR UNKNOWN INDICATION

REACTIONS (23)
  - Transient ischaemic attack [Recovered/Resolved with Sequelae]
  - Hemiparesis [Recovered/Resolved with Sequelae]
  - Walking aid user [Not Recovered/Not Resolved]
  - Injection site pain [Not Recovered/Not Resolved]
  - Dizziness [Recovered/Resolved]
  - Anxiety [Recovered/Resolved]
  - Depression [Recovered/Resolved]
  - Blood glucose fluctuation [Unknown]
  - Loss of consciousness [Unknown]
  - Incoherent [Unknown]
  - Blood glucose decreased [Unknown]
  - Urinary tract infection [Unknown]
  - Oedema peripheral [Unknown]
  - Psychotic disorder [Unknown]
  - Memory impairment [Unknown]
  - Neck pain [Recovered/Resolved]
  - Musculoskeletal pain [Recovered/Resolved]
  - Oedema peripheral [Not Recovered/Not Resolved]
  - Injection site pain [Unknown]
  - Device malfunction [Recovered/Resolved]
  - Cerebrovascular accident [Unknown]
  - Pain [Unknown]
  - Injection site pain [Unknown]
